FAERS Safety Report 6825503-1 (Version None)
Quarter: 2010Q3

REPORT INFORMATION
  Report Type: 
  Country: None (occurrence: None)
  Receive Date: 20100708
  Receipt Date: 20070208
  Transmission Date: 20110219
  Serious: No
  Sender: FDA-Public Use
  Company Number: US-PFIZER INC-2006151859

PATIENT
  Sex: Female

DRUGS (9)
  1. CHANTIX [Suspect]
     Dosage: ONE STARTER PACK, TWO CONTINUATION PACKS
     Route: 048
     Dates: start: 20060101
  2. SPIRIVA [Concomitant]
  3. ADVAIR DISKUS 100/50 [Concomitant]
  4. THEOPHYLLINE [Concomitant]
  5. MONTELUKAST SODIUM [Concomitant]
  6. ALBUTEROL [Concomitant]
     Route: 048
  7. ALBUTEROL [Concomitant]
     Route: 055
  8. TESSALON [Concomitant]
  9. HYDROCHLOROTHIAZIDE [Concomitant]

REACTIONS (7)
  - ABDOMINAL PAIN UPPER [None]
  - ABNORMAL DREAMS [None]
  - CONSTIPATION [None]
  - DIARRHOEA [None]
  - FAECES HARD [None]
  - TOBACCO WITHDRAWAL SYMPTOMS [None]
  - WEIGHT INCREASED [None]
